FAERS Safety Report 6139726-0 (Version None)
Quarter: 2009Q1

REPORT INFORMATION
  Report Type: 
  Country: None (occurrence: None)
  Receive Date: 20090324
  Receipt Date: 20090313
  Transmission Date: 20090719
  Serious: Yes (Death, Life-Threatening, Hospitalization)
  Sender: FDA-Public Use
  Company Number: CLOF-1000419

PATIENT
  Age: 16 Year
  Sex: Female

DRUGS (2)
  1. CLOLAR [Suspect]
     Indication: ACUTE LEUKAEMIA
     Dosage: 1, QDX5
     Dates: start: 20081229, end: 20090102
  2. CYTARABINE [Suspect]
     Indication: ACUTE LEUKAEMIA
     Dates: start: 20081229, end: 20090102

REACTIONS (2)
  - EPIDERMOLYSIS [None]
  - RASH VESICULAR [None]
